FAERS Safety Report 10265996 (Version 1)
Quarter: 2014Q2

REPORT INFORMATION
  Report Type: Spontaneous
  Country: US (occurrence: US)
  Receive Date: 20140627
  Receipt Date: 20140627
  Transmission Date: 20141212
  Serious: Yes (Other)
  Sender: FDA-Public Use
  Company Number: US-ASTRAZENECA-2014SE45597

PATIENT
  Age: 70 Year
  Sex: Female
  Weight: 63.5 kg

DRUGS (1)
  1. ARIMIDEX [Suspect]
     Indication: BREAST CANCER
     Dosage: DAILY
     Route: 048
     Dates: start: 2009

REACTIONS (6)
  - Fall [Unknown]
  - Face injury [Unknown]
  - Abdominal distension [Unknown]
  - Bone density decreased [Unknown]
  - Osteopenia [None]
  - Osteoporosis [None]
